FAERS Safety Report 6725957-5 (Version None)
Quarter: 2010Q2

REPORT INFORMATION
  Report Type: 
  Country: None (occurrence: None)
  Receive Date: 20100512
  Receipt Date: 20100506
  Transmission Date: 20101027
  Serious: Yes (Life-Threatening, Hospitalization)
  Sender: FDA-Public Use
  Company Number: 1000009662

PATIENT
  Age: 37 Year
  Sex: Female

DRUGS (2)
  1. DINOPROSTONE (DINOPROSTONE) (VAGINAL INSERT) [Suspect]
     Indication: LABOUR INDUCTION
     Dosage: (10 MG,ONCE),VAGINAL
     Route: 067
     Dates: start: 20091003, end: 20091004
  2. PROSTIN E2 [Suspect]
     Dosage: (3 MG),VAGINAL
     Route: 067
     Dates: start: 20091005

REACTIONS (6)
  - DEVICE DISLOCATION [None]
  - DRUG EXPOSURE DURING PREGNANCY [None]
  - HYSTERECTOMY [None]
  - NO THERAPEUTIC RESPONSE [None]
  - POSTPARTUM HAEMORRHAGE [None]
  - PROLONGED PREGNANCY [None]
